FAERS Safety Report 9384674 (Version 1)
Quarter: 2013Q3

REPORT INFORMATION
  Report Type: Spontaneous
  Country: HR (occurrence: None)
  Receive Date: 20130701
  Receipt Date: 20130701
  Transmission Date: 20140515
  Serious: Yes (Hospitalization)
  Sender: FDA-Public Use
  Company Number: 2013P1009948

PATIENT
  Age: 38 Year
  Sex: Female

DRUGS (2)
  1. PHENOBARBITAL [Suspect]
     Indication: CONVULSION PROPHYLAXIS
  2. NONI JUICE [Suspect]
     Indication: ASTHENIA
     Route: 048
     Dates: start: 201110

REACTIONS (7)
  - Jaundice [None]
  - Anticonvulsant drug level below therapeutic [None]
  - Hepatic necrosis [None]
  - Cholestasis [None]
  - Drug-induced liver injury [None]
  - Toxicity to various agents [None]
  - Herbal interaction [None]
